FAERS Safety Report 23549623 (Version 2)
Quarter: 2024Q2

REPORT INFORMATION
  Report Type: Spontaneous
  Country: US (occurrence: US)
  Receive Date: 20240221
  Receipt Date: 20240530
  Transmission Date: 20240716
  Serious: Yes (Other)
  Sender: FDA-Public Use
  Company Number: US-Blueprint Medicines Corporation-2394

PATIENT
  Age: 75 Year
  Sex: Female

DRUGS (1)
  1. AYVAKIT [Suspect]
     Active Substance: AVAPRITINIB
     Indication: Systemic mastocytosis
     Route: 065
     Dates: start: 20240126

REACTIONS (8)
  - Chronic kidney disease [Unknown]
  - Hydronephrosis [Unknown]
  - Urinary tract obstruction [Unknown]
  - Mastectomy [Unknown]
  - Breast reconstruction [Unknown]
  - Renal surgery [Unknown]
  - White blood cell count increased [Unknown]
  - Full blood count abnormal [Unknown]

NARRATIVE: CASE EVENT DATE: 20240401
